FAERS Safety Report 9114238 (Version 1)
Quarter: 2013Q1

REPORT INFORMATION
  Report Type: Spontaneous
  Country: US (occurrence: US)
  Receive Date: 20130208
  Receipt Date: 20130208
  Transmission Date: 20140127
  Serious: No
  Sender: FDA-Public Use
  Company Number: US-PFIZER INC-2013049721

PATIENT
  Age: 59 Year
  Sex: Female

DRUGS (4)
  1. CELEBREX [Suspect]
     Indication: ARTHRALGIA
     Dosage: 200 MG, 2X/DAY
     Route: 048
     Dates: start: 20130204
  2. NEXIUM [Concomitant]
     Indication: GASTROOESOPHAGEAL REFLUX DISEASE
     Dosage: UNK
  3. TOPROL [Concomitant]
     Dosage: UNK
  4. ATIVAN [Concomitant]
     Dosage: UNK

REACTIONS (2)
  - Dizziness [Unknown]
  - Somnolence [Unknown]
